FAERS Safety Report 9358248 (Version 4)
Quarter: 2013Q3

REPORT INFORMATION
  Report Type: Spontaneous
  Country: US (occurrence: US)
  Receive Date: 20130620
  Receipt Date: 20130902
  Transmission Date: 20140515
  Serious: Yes (Hospitalization)
  Sender: FDA-Public Use
  Company Number: US-PFIZER INC-2013181897

PATIENT
  Age: 47 Year
  Sex: Male
  Weight: 97.5 kg

DRUGS (13)
  1. SOMAVERT [Suspect]
     Indication: ACROMEGALY
     Dosage: 10 MG, 1X/DAY
     Route: 058
     Dates: start: 201103
  2. SOMAVERT [Suspect]
     Indication: HYPOTHALAMO-PITUITARY DISORDER
     Dosage: 10 MG, 1X/DAY
     Route: 058
     Dates: start: 20130131
  3. SOMAVERT [Suspect]
     Dosage: UNK
  4. XANAX [Concomitant]
     Dosage: 2 MG, UNK
  5. TESTOSTERONE CIPIONATE [Concomitant]
     Dosage: 200 MG/ML, (1 CC Q2 WEEKS)
     Route: 030
  6. LORTAB [Concomitant]
     Dosage: 10/ 500, UNK
  7. MELOXICAM [Concomitant]
     Dosage: 15 MG, UNK
  8. SOMATULINE DEPOT [Concomitant]
     Dosage: UNK
  9. ALPRAZOLAM [Concomitant]
     Dosage: 2 MG, (1/2 - AT BEDTIME)
  10. HYDROCODONE W/ACETAMINOPHEN [Concomitant]
     Dosage: (HYDROCODONE 7.5 MG/ACETAMINOPHEN 325MG) ?
  11. PREDNISONE [Concomitant]
     Dosage: 5 MG, 1X/DAY
  12. SYNTHROID [Concomitant]
     Dosage: 100 UG, 1X/DAY
  13. ASPIRIN/CAFFEINE/SALICYLAMIDE [Concomitant]
     Dosage: (325-16-96 MG)

REACTIONS (12)
  - Staphylococcal infection [Unknown]
  - Diarrhoea [Recovered/Resolved]
  - Asthenia [Unknown]
  - Fatigue [Recovered/Resolved]
  - Oral herpes [Unknown]
  - Weight increased [Unknown]
  - Headache [Unknown]
  - Arthralgia [Unknown]
  - Musculoskeletal stiffness [Unknown]
  - Injection site hypertrophy [Not Recovered/Not Resolved]
  - Blood growth hormone increased [Unknown]
  - Muscle spasms [Recovered/Resolved]
